FAERS Safety Report 8882851 (Version 1)
Quarter: 2012Q4

REPORT INFORMATION
  Report Type: 
  Country: US (occurrence: US)
  Receive Date: 20121102
  Receipt Date: 20121102
  Transmission Date: 20130627
  Serious: No
  Sender: FDA-Public Use
  Company Number: US-ASTRAZENECA-2011SE70102

PATIENT
  Age: 55 Year
  Sex: Female
  Weight: 68 kg

DRUGS (3)
  1. CRESTOR [Suspect]
     Indication: BLOOD CHOLESTEROL INCREASED
     Route: 048
  2. FLAXSEED OIL [Concomitant]
     Indication: BLOOD CHOLESTEROL INCREASED
  3. SALMON OIL [Concomitant]
     Indication: BLOOD CHOLESTEROL INCREASED

REACTIONS (5)
  - Abasia [Recovering/Resolving]
  - Pain [Recovering/Resolving]
  - Fibromyalgia [Unknown]
  - Myalgia [Recovered/Resolved]
  - Drug ineffective [Unknown]
